FAERS Safety Report 8578835-3 (Version None)
Quarter: 2012Q3

REPORT INFORMATION
  Report Type: 
  Country: None (occurrence: None)
  Receive Date: 20120808
  Receipt Date: 20120717
  Transmission Date: 20120928
  Serious: Yes (Other)
  Sender: FDA-Public Use
  Company Number: DK-JNJFOC-20120802777

PATIENT
  Sex: Male
  Weight: 75 kg

DRUGS (6)
  1. PREDNISOLONE [Concomitant]
     Route: 065
  2. ZYTIGA [Suspect]
     Indication: PROSTATE CANCER METASTATIC
     Route: 048
     Dates: start: 20120508
  3. WARFARIN SODIUM [Interacting]
     Indication: ATRIAL FIBRILLATION
     Route: 065
     Dates: end: 20120629
  4. ARMODAFINIL [Interacting]
     Indication: PRODUCT USED FOR UNKNOWN INDICATION
     Route: 065
     Dates: start: 20120614
  5. ARMODAFINIL [Interacting]
     Route: 065
     Dates: start: 20120612
  6. ARMODAFINIL [Interacting]
     Route: 065
     Dates: start: 20120621

REACTIONS (2)
  - DRUG INTERACTION [None]
  - INTERNATIONAL NORMALISED RATIO INCREASED [None]
